FAERS Safety Report 17309660 (Version 1)
Quarter: 2020Q1

REPORT INFORMATION
  Report Type: Spontaneous
  Country: US (occurrence: US)
  Receive Date: 20200123
  Receipt Date: 20200123
  Transmission Date: 20200409
  Serious: No
  Sender: FDA-Public Use
  Company Number: US-ROCHE-2361522

PATIENT
  Sex: Male

DRUGS (2)
  1. AMICAR [Concomitant]
     Active Substance: AMINOCAPROIC ACID
  2. HEMLIBRA [Suspect]
     Active Substance: EMICIZUMAB-KXWH
     Indication: FACTOR VIII DEFICIENCY
     Dosage: 15 MG (0.5 ML)
     Route: 058
     Dates: start: 201902

REACTIONS (2)
  - Viral infection [Unknown]
  - Oral mucosal blistering [Unknown]
